FAERS Safety Report 24705972 (Version 1)
Quarter: 2024Q4

REPORT INFORMATION
  Report Type: Spontaneous
  Country: CN (occurrence: CN)
  Receive Date: 20241206
  Receipt Date: 20241206
  Transmission Date: 20250115
  Serious: Yes (Hospitalization, Disabling)
  Sender: BEIGENE
  Company Number: CN-BEIGENE-BGN-2024-019374

PATIENT

DRUGS (5)
  1. TISLELIZUMAB [Suspect]
     Active Substance: TISLELIZUMAB
     Indication: Anal cancer
     Dosage: 200 MILLIGRAM
     Route: 041
     Dates: start: 20241108
  2. CISPLATIN [Suspect]
     Active Substance: CISPLATIN
     Indication: Anal cancer
     Dosage: 42.5 MILLIGRAM
     Route: 041
     Dates: start: 20241109
  3. TEMOZOLOMIDE [Suspect]
     Active Substance: TEMOZOLOMIDE
     Indication: Anal cancer
     Dosage: 340 MILLIGRAM, QD
     Route: 048
     Dates: start: 20241109
  4. SODIUM CHLORIDE [Concomitant]
     Active Substance: SODIUM CHLORIDE
     Indication: Vehicle solution use
     Dosage: 180 MILLILITER
     Route: 041
     Dates: start: 20241108, end: 20241108
  5. SODIUM CHLORIDE [Concomitant]
     Active Substance: SODIUM CHLORIDE
     Dosage: 250 MILLILITER
     Route: 041
     Dates: start: 20241109, end: 20241111

REACTIONS (2)
  - White blood cell count decreased [Recovered/Resolved]
  - Neutrophil count decreased [Recovered/Resolved]

NARRATIVE: CASE EVENT DATE: 20241125
